FAERS Safety Report 9890871 (Version 1)
Quarter: 2014Q1

REPORT INFORMATION
  Report Type: Spontaneous
  Country: US (occurrence: US)
  Receive Date: 20140212
  Receipt Date: 20140212
  Transmission Date: 20141002
  Serious: No
  Sender: FDA-Public Use
  Company Number: US-BAYER-2014-018718

PATIENT
  Age: 74 Year
  Sex: Male
  Weight: 90.7 kg

DRUGS (5)
  1. ALEVE CAPLET [Suspect]
     Indication: INFLAMMATION
     Dosage: 1 DF, BID
     Route: 048
     Dates: start: 201311
  2. ALEVE CAPLET [Suspect]
     Indication: ARTHRITIS
  3. ENALAPRIL [Concomitant]
  4. TAMSULOSIN [Concomitant]
  5. CARVEDILOL [Concomitant]

REACTIONS (3)
  - Dyspepsia [Recovered/Resolved]
  - Incorrect drug administration duration [None]
  - Off label use [None]
